FAERS Safety Report 4263710-5 (Version None)
Quarter: 2004Q1

REPORT INFORMATION
  Report Type: 
  Country: None (occurrence: None)
  Receive Date: 20040102
  Receipt Date: 20031217
  Transmission Date: 20041129
  Serious: Yes (Other)
  Sender: FDA-Public Use
  Company Number: EWC031237469

PATIENT
  Age: 25 Year
  Sex: Female
  Weight: 70 kg

DRUGS (9)
  1. XIGRIS [Suspect]
     Indication: SEPSIS
     Dosage: 24 UG/KG/HR
     Dates: start: 20031212, end: 20031216
  2. ZINACEF [Concomitant]
  3. ROCEPHIN [Concomitant]
  4. ZANTAC [Concomitant]
  5. CLEXANE (HEPARIN-FRACTION, SODIUM SALT) [Concomitant]
  6. CELESTON (BETAMETHASONE) [Concomitant]
  7. NORMOPRESAN (CLONIDINE HYDROCHLORIDE) [Concomitant]
  8. GARAMYCIN [Concomitant]
  9. DORMICUM (NITRAZEPAM) [Concomitant]

REACTIONS (3)
  - COMPLICATIONS OF MATERNAL EXPOSURE TO THERAPEUTIC DRUGS [None]
  - PREMATURE RUPTURE OF MEMBRANES [None]
  - UTERINE CONTRACTIONS DURING PREGNANCY [None]
